FAERS Safety Report 20804440 (Version 3)
Quarter: 2022Q3

REPORT INFORMATION
  Report Type: Spontaneous
  Country: US (occurrence: US)
  Receive Date: 20220509
  Receipt Date: 20220829
  Transmission Date: 20221027
  Serious: Yes (Other)
  Sender: FDA-Public Use
  Company Number: US-BRISTOL-MYERS SQUIBB COMPANY-2022-029603

PATIENT
  Age: 63 Year
  Sex: Female

DRUGS (2)
  1. ORENCIA [Suspect]
     Active Substance: ABATACEPT
     Indication: Product used for unknown indication
     Dosage: DOSE : UNAVAILABLE;     FREQ : ^1 INJECTION WEEKLY ^?1 SYRINGE
     Route: 058
  2. ORENCIA [Suspect]
     Active Substance: ABATACEPT

REACTIONS (3)
  - Foot fracture [Unknown]
  - Hypoaesthesia [Unknown]
  - Contusion [Unknown]
